FAERS Safety Report 5091539-7 (Version None)
Quarter: 2006Q3

REPORT INFORMATION
  Report Type: 
  Country: None (occurrence: None)
  Receive Date: 20060824
  Receipt Date: 20060812
  Transmission Date: 20061208
  Serious: Yes (Disabling)
  Sender: FDA-Public Use
  Company Number: 2006098723

PATIENT
  Age: 60 Year
  Sex: Male
  Weight: 65 kg

DRUGS (4)
  1. LYRICA [Suspect]
     Indication: DIABETIC NEUROPATHY
     Dosage: 300 MG (DAILY), ORAL
     Route: 048
     Dates: start: 20050401, end: 20060601
  2. BISOPROLOL FUMARATE [Concomitant]
  3. DIGITOXIN [Concomitant]
  4. CAPTOPRIL [Concomitant]

REACTIONS (1)
  - GYNAECOMASTIA [None]
